FAERS Safety Report 7526721-X (Version None)
Quarter: 2011Q2

REPORT INFORMATION
  Report Type: 
  Country: None (occurrence: None)
  Receive Date: 20110606
  Receipt Date: 20110601
  Transmission Date: 20111010
  Serious: Yes (Death, Hospitalization)
  Sender: FDA-Public Use
  Company Number: US-ASTRAZENECA-2010SE54921

PATIENT
  Age: 804 Month
  Sex: Male

DRUGS (12)
  1. SPIRIVA [Concomitant]
  2. LORAZEPAM [Concomitant]
  3. RESCUE INHALER [Concomitant]
  4. SERTRALINE HYDROCHLORIDE [Concomitant]
  5. METOPROLOL TARTRATE [Concomitant]
  6. MIRAPEX [Concomitant]
  7. PANTOPRAZOLE [Concomitant]
  8. SYMBICORT [Suspect]
     Dosage: 80/4.5 UG 2 PUFFS BID
     Route: 055
     Dates: start: 20090101
  9. PRAVASTATIN [Concomitant]
  10. ZEMPLAR [Concomitant]
  11. WARFARIN SODIUM [Concomitant]
  12. HEART MEDICINES [Concomitant]

REACTIONS (5)
  - ADVERSE EVENT [None]
  - DEATH [None]
  - PULMONARY EMBOLISM [None]
  - DYSPNOEA [None]
  - DRUG DOSE OMISSION [None]
